FAERS Safety Report 17596619 (Version 2)
Quarter: 2025Q3

REPORT INFORMATION
  Report Type: Spontaneous
  Country: US (occurrence: US)
  Receive Date: 20200330
  Receipt Date: 20250703
  Transmission Date: 20251021
  Serious: Yes (Life-Threatening, Hospitalization, Other)
  Sender: AUROBINDO
  Company Number: US-MLMSERVICE-20200312-2205746-1

PATIENT
  Age: 53 Year
  Sex: Female

DRUGS (2)
  1. METHOTREXATE [Suspect]
     Active Substance: METHOTREXATE
     Indication: Still^s disease
     Route: 065
  2. AZATHIOPRINE [Suspect]
     Active Substance: AZATHIOPRINE
     Indication: Product used for unknown indication
     Route: 065

REACTIONS (8)
  - Disseminated cytomegaloviral infection [Recovered/Resolved]
  - Chronic gastritis [Recovering/Resolving]
  - Thrombocytopenia [Recovering/Resolving]
  - Schistocytosis [Recovering/Resolving]
  - Odynophagia [Recovering/Resolving]
  - Disseminated intravascular coagulation [Recovering/Resolving]
  - Haemophagocytic lymphohistiocytosis [Recovering/Resolving]
  - Hypotension [Recovering/Resolving]
